FAERS Safety Report 8031074-7 (Version None)
Quarter: 2012Q1

REPORT INFORMATION
  Report Type: 
  Country: None (occurrence: None)
  Receive Date: 20120109
  Receipt Date: 20120104
  Transmission Date: 20120608
  Serious: Yes (Life-Threatening, Hospitalization)
  Sender: FDA-Public Use
  Company Number: FR-PFIZER INC-2011291744

PATIENT
  Age: 61 Year
  Sex: Male

DRUGS (7)
  1. ALDACTONE [Suspect]
     Dosage: UNKNOWN
     Route: 048
  2. GLUCOPHAGE [Suspect]
     Indication: TYPE 2 DIABETES MELLITUS
     Dosage: UNK
     Route: 048
     Dates: end: 20110924
  3. GLUCOPHAGE [Suspect]
     Indication: DIABETES MELLITUS
  4. PREDNISOLONE [Suspect]
     Dosage: 20 MG, 1X/DAY
     Route: 048
  5. GALENIC /HYDROCHLOROTHIAZIDE/VALSARTAN/ [Suspect]
     Dosage: UNKNOWN
     Route: 048
  6. PROPRANOLOL [Suspect]
     Dosage: UNKNOWN
     Route: 048
  7. VALSARTAN [Suspect]
     Dosage: 160 MG, 1X/DAY
     Route: 048

REACTIONS (3)
  - RENAL FAILURE ACUTE [None]
  - LACTIC ACIDOSIS [None]
  - SEPTIC SHOCK [None]
